FAERS Safety Report 5586272-9 (Version None)
Quarter: 2007Q4

REPORT INFORMATION
  Report Type: 
  Country: None (occurrence: None)
  Receive Date: 20071212
  Receipt Date: 20070507
  Transmission Date: 20080405
  Serious: Yes (Death)
  Sender: FDA-Public Use
  Company Number: USA-2007-0027262

PATIENT
  Age: 49 Year
  Sex: Male

DRUGS (8)
  1. OXYCONTIN [Suspect]
     Indication: PAIN
     Dosage: 60 MG, BID,
     Dates: start: 20020101, end: 20070202
  2. METHADONE HCL [Suspect]
     Indication: PAIN
     Dosage: 30 MG, SEE TEXT
     Dates: start: 20070201, end: 20070202
  3. VICODIN [Concomitant]
  4. FENTANYL [Concomitant]
  5. LIDODERM [Concomitant]
  6. GABAPENTIN [Concomitant]
  7. NAPROXEN [Concomitant]
  8. MUSCLE RELAXANTS [Concomitant]

REACTIONS (1)
  - RESPIRATORY DEPRESSION [None]
